FAERS Safety Report 5868506-6 (Version None)
Quarter: 2008Q3

REPORT INFORMATION
  Report Type: 
  Country: None (occurrence: None)
  Receive Date: 20080828
  Receipt Date: 20080815
  Transmission Date: 20090109
  Serious: Yes (Hospitalization)
  Sender: FDA-Public Use
  Company Number: 230652K07USA

PATIENT
  Age: 36 Year
  Sex: Female
  Weight: 58.9676 kg

DRUGS (4)
  1. REBIF [Suspect]
     Indication: MULTIPLE SCLEROSIS
     Dosage: 44 MCG, 3 IN 1 WEEKS, SUBCUTANEOUS
     Route: 058
     Dates: start: 20050425
  2. TYLENOL XS(COTYLENOL) [Concomitant]
  3. XANAX [Concomitant]
  4. NEURONTIN [Concomitant]

REACTIONS (4)
  - HEART RATE DECREASED [None]
  - HEMIPARESIS [None]
  - HYPOTENSION [None]
  - PAIN IN EXTREMITY [None]
